FAERS Safety Report 14773050 (Version 1)
Quarter: 2018Q2

REPORT INFORMATION
  Report Type: Spontaneous
  Country: LT (occurrence: LT)
  Receive Date: 20180418
  Receipt Date: 20180418
  Transmission Date: 20180711
  Serious: Yes (Hospitalization)
  Sender: FDA-Public Use
  Company Number: LT-KRKA, D.D., NOVO MESTO-2045922

PATIENT
  Age: 64 Year
  Sex: Female
  Weight: 65 kg

DRUGS (3)
  1. CAVINTON [Suspect]
     Active Substance: VINPOCETINE
     Route: 048
  2. MIRTAZAPINE. [Suspect]
     Active Substance: MIRTAZAPINE
     Route: 048
  3. ENALAPRIL MALEATE. [Suspect]
     Active Substance: ENALAPRIL MALEATE
     Indication: SUICIDE ATTEMPT
     Route: 048

REACTIONS (1)
  - Personality disorder [Unknown]

NARRATIVE: CASE EVENT DATE: 20180311
